FAERS Safety Report 6010308-4 (Version None)
Quarter: 2008Q4

REPORT INFORMATION
  Report Type: 
  Country: None (occurrence: None)
  Receive Date: 20081218
  Receipt Date: 20080603
  Transmission Date: 20090506
  Serious: No
  Sender: FDA-Public Use
  Company Number: A0730910A

PATIENT
  Age: 30 Year
  Sex: Male

DRUGS (2)
  1. FLONASE [Suspect]
     Dosage: 1SPR TWICE PER DAY
     Route: 045
     Dates: start: 20040801
  2. NO CONCURRENT MEDICATION [Concomitant]

REACTIONS (13)
  - BRONCHOSPASM [None]
  - CHEST DISCOMFORT [None]
  - CHEST PAIN [None]
  - CHILLS [None]
  - COUGH [None]
  - FEELING COLD [None]
  - MUSCLE SPASMS [None]
  - MUSCLE STRAIN [None]
  - OEDEMA PERIPHERAL [None]
  - PRODUCTIVE COUGH [None]
  - RASH [None]
  - SENSATION OF HEAVINESS [None]
  - SOMNOLENCE [None]
